FAERS Safety Report 6070541-2 (Version None)
Quarter: 2009Q1

REPORT INFORMATION
  Report Type: 
  Country: None (occurrence: None)
  Receive Date: 20090209
  Receipt Date: 20090126
  Transmission Date: 20090719
  Serious: Yes (Disabling)
  Sender: FDA-Public Use
  Company Number: ES-ROCHE-610311

PATIENT
  Sex: Female
  Weight: 62.5 kg

DRUGS (17)
  1. METHOXY POLYETHYLENE GLYCOL-EPOETIN BETA [Suspect]
     Dosage: FREQUENCY: MONTHLY, DOSE: PFS, LAST DOSE WAS ON 05 DEC 2008
     Route: 042
     Dates: start: 20080903
  2. VITAMIN B1/VITAMIN B6/VITAMIN B12 [Concomitant]
     Dates: start: 20080316
  3. RESINCALCIO [Concomitant]
     Dates: start: 20080401
  4. ASCORBIC ACID [Concomitant]
     Dates: start: 20080318
  5. FOLIC ACID [Concomitant]
     Dates: start: 20040316
  6. BROMAZEPAM [Concomitant]
     Dates: start: 20040615
  7. SODIUM BICARBONATE [Concomitant]
     Dates: start: 20050201
  8. PENTOXIFILINA [Concomitant]
     Dates: start: 20051202
  9. FAMOTIDINE [Concomitant]
     Dates: start: 20061204
  10. DOXAZOSIN MESYLATE [Concomitant]
     Dates: start: 20070122
  11. ACETYLSALICYLIC ACID SRT [Concomitant]
     Dates: start: 20071005
  12. PARACETAMOL [Concomitant]
     Dosage: DOSE: AS NEEDED.
     Dates: start: 20080331
  13. CLINUTREN [Concomitant]
     Dates: start: 20060510
  14. CINACALCET [Concomitant]
     Dates: start: 20081001
  15. CALCIUM CARBONATE [Concomitant]
     Dates: start: 20081205
  16. AMIODARONE [Concomitant]
     Dates: start: 20081007
  17. ACENOCUMAROLUM [Concomitant]
     Dosage: DOSE: AS NEEDED
     Dates: start: 20080914

REACTIONS (1)
  - ISCHAEMIC NEUROPATHY [None]
